FAERS Safety Report 5303272-4 (Version None)
Quarter: 2007Q2

REPORT INFORMATION
  Report Type: 
  Country: None (occurrence: None)
  Receive Date: 20070420
  Receipt Date: 20070416
  Transmission Date: 20071010
  Serious: Yes (Other)
  Sender: FDA-Public Use
  Company Number: US-GLAXOSMITHKLINE-A0647445A

PATIENT
  Age: 7 Year
  Sex: Male

DRUGS (3)
  1. ADVAIR DISKUS 100/50 [Suspect]
     Indication: ASTHMA
     Dosage: 1PUFF TWICE PER DAY
     Route: 055
     Dates: start: 20060201, end: 20060901
  2. ZYRTEC [Concomitant]
  3. RHINOCORT [Concomitant]

REACTIONS (3)
  - ANGIOEDEMA [None]
  - PRURITUS [None]
  - RASH GENERALISED [None]
